FAERS Safety Report 23225213 (Version 3)
Quarter: 2024Q1

REPORT INFORMATION
  Report Type: Report from Study
  Country: CL (occurrence: CL)
  Receive Date: 20231124
  Receipt Date: 20240104
  Transmission Date: 20240410
  Serious: Yes (Other)
  Sender: FDA-Public Use
  Company Number: CL-JNJFOC-20231078310

PATIENT
  Age: 48 Year
  Sex: Female

DRUGS (2)
  1. SIMPONI [Suspect]
     Active Substance: GOLIMUMAB
     Indication: Psoriatic arthropathy
     Dosage: LAST DRUG APPLICATION: 20-NOV-2023
     Route: 058
     Dates: start: 20230628
  2. COSENTYX [Suspect]
     Active Substance: SECUKINUMAB
     Indication: Product used for unknown indication
     Dates: start: 2023

REACTIONS (5)
  - Psoriatic arthropathy [Not Recovered/Not Resolved]
  - Influenza [Unknown]
  - Bedridden [Unknown]
  - Psoriasis [Unknown]
  - Drug ineffective [Unknown]
